FAERS Safety Report 20086175 (Version 1)
Quarter: 2021Q4

REPORT INFORMATION
  Report Type: Spontaneous
  Country: US (occurrence: US)
  Receive Date: 20211118
  Receipt Date: 20211118
  Transmission Date: 20220303
  Serious: No
  Sender: FDA-Public Use
  Company Number: US-ONCOPEPPR-00037

PATIENT
  Sex: Female

DRUGS (1)
  1. PEPAXTO [Suspect]
     Active Substance: MELPHALAN FLUFENAMIDE
     Indication: Product used for unknown indication
     Route: 050

REACTIONS (4)
  - Diarrhoea [Recovered/Resolved]
  - Intentional underdose [Unknown]
  - Incorrect route of product administration [Unknown]
  - Off label use [Unknown]
